FAERS Safety Report 14366800 (Version 3)
Quarter: 2018Q1

REPORT INFORMATION
  Report Type: Report from Study
  Country: US (occurrence: US)
  Receive Date: 20180109
  Receipt Date: 20180219
  Transmission Date: 20180509
  Serious: Yes (Hospitalization, Other)
  Sender: FDA-Public Use
  Company Number: US-BAYER-2017-244247

PATIENT
  Age: 64 Year
  Sex: Male

DRUGS (2)
  1. NEXAVAR [Suspect]
     Active Substance: SORAFENIB
     Indication: HEPATOCELLULAR CARCINOMA
     Dosage: 400 MG, BID
     Route: 048
     Dates: start: 20171205, end: 20171225
  2. NEXAVAR [Suspect]
     Active Substance: SORAFENIB
     Indication: HEPATOCELLULAR CARCINOMA
     Dosage: 200 MG, BID
     Route: 048
     Dates: start: 20171226

REACTIONS (10)
  - Blood glucose decreased [None]
  - Diarrhoea [None]
  - Drug ineffective [None]
  - Diarrhoea [None]
  - Intra-abdominal fluid collection [None]
  - Dyspnoea [None]
  - Pulmonary pain [None]
  - Eating disorder [None]
  - Asthenia [None]
  - Blood potassium decreased [None]

NARRATIVE: CASE EVENT DATE: 201712
